FAERS Safety Report 10976218 (Version 5)
Quarter: 2015Q2

REPORT INFORMATION
  Report Type: Spontaneous
  Country: US (occurrence: US)
  Receive Date: 20150401
  Receipt Date: 20150522
  Transmission Date: 20150821
  Serious: Yes (Hospitalization)
  Sender: FDA-Public Use
  Company Number: US-BIOMARINAP-US-2015-105956

PATIENT
  Age: 29 Year
  Sex: Female
  Weight: 39.8 kg

DRUGS (1)
  1. VIMIZIM [Suspect]
     Active Substance: ELOSULFASE ALFA
     Indication: MUCOPOLYSACCHARIDOSIS IV
     Dosage: 80 MG, QW
     Route: 042
     Dates: start: 20141205

REACTIONS (8)
  - Acute respiratory failure [Not Recovered/Not Resolved]
  - Acute respiratory distress syndrome [Unknown]
  - Respiratory disorder [Not Recovered/Not Resolved]
  - Acute kidney injury [Not Recovered/Not Resolved]
  - Influenza [Not Recovered/Not Resolved]
  - Respiratory syncytial virus infection [Unknown]
  - Sepsis [Not Recovered/Not Resolved]
  - Infection [Not Recovered/Not Resolved]

NARRATIVE: CASE EVENT DATE: 20150327
